FAERS Safety Report 7327878-6 (Version None)
Quarter: 2011Q1

REPORT INFORMATION
  Report Type: 
  Country: None (occurrence: None)
  Receive Date: 20110224
  Receipt Date: 20110224
  Transmission Date: 20110831
  Serious: No
  Sender: FDA-Public Use
  Company Number: None

PATIENT

DRUGS (2)
  1. ZITHROMAX [Suspect]
     Dates: start: 20090303, end: 20090305
  2. PRILOSEC [Suspect]
     Dates: start: 20090201, end: 20090302

REACTIONS (4)
  - UPPER RESPIRATORY TRACT INFECTION [None]
  - TOXICITY TO VARIOUS AGENTS [None]
  - CHOLESTASIS [None]
  - DECREASED APPETITE [None]
